FAERS Safety Report 5829638-1 (Version None)
Quarter: 2008Q3

REPORT INFORMATION
  Report Type: 
  Country: None (occurrence: None)
  Receive Date: 20080729
  Receipt Date: 20080715
  Transmission Date: 20090109
  Serious: Yes (Hospitalization)
  Sender: FDA-Public Use
  Company Number: 2008BI006206

PATIENT
  Age: 43 Year
  Sex: Female
  Weight: 124.2856 kg

DRUGS (2)
  1. AVONEX [Suspect]
     Indication: MULTIPLE SCLEROSIS
     Dosage: 30 UG;QW;IM
     Route: 030
     Dates: start: 20040401
  2. FOSAMAX [Concomitant]

REACTIONS (10)
  - ARTHRALGIA [None]
  - ARTHROPATHY [None]
  - CONTUSION [None]
  - FALL [None]
  - ORTHOSIS USER [None]
  - OSTEOARTHRITIS [None]
  - PERIOSTITIS [None]
  - TENDONITIS [None]
  - URINARY TRACT INFECTION [None]
  - WALKING AID USER [None]
